FAERS Safety Report 7496801-6 (Version None)
Quarter: 2011Q2

REPORT INFORMATION
  Report Type: 
  Country: None (occurrence: None)
  Receive Date: 20110523
  Receipt Date: 20110512
  Transmission Date: 20111010
  Serious: Yes (Hospitalization)
  Sender: FDA-Public Use
  Company Number: AU-ROCHE-777067

PATIENT
  Age: 17 Year
  Sex: Female

DRUGS (1)
  1. ACCUTANE [Suspect]
     Dosage: DOSE UNSPECIFIED ONE TIME
     Route: 048
     Dates: start: 20100131, end: 20110320

REACTIONS (1)
  - LIPASE INCREASED [None]
